FAERS Safety Report 23210892 (Version 1)
Quarter: 2023Q4

REPORT INFORMATION
  Report Type: Spontaneous
  Country: ES (occurrence: None)
  Receive Date: 20231121
  Receipt Date: 20231121
  Transmission Date: 20240110
  Serious: Yes (Other)
  Sender: FDA-Public Use
  Company Number: 2023A259838

PATIENT
  Sex: Female

DRUGS (1)
  1. TAGRISSO [Suspect]
     Active Substance: OSIMERTINIB
     Indication: Non-small cell lung cancer stage IV
     Route: 048

REACTIONS (12)
  - Thrombosis [Unknown]
  - Eyelid oedema [Unknown]
  - Photophobia [Unknown]
  - Pruritus [Recovered/Resolved]
  - Polyarthritis [Unknown]
  - Antinuclear antibody positive [Unknown]
  - Systemic lupus erythematosus [Unknown]
  - Gamma-glutamyltransferase increased [Unknown]
  - Myalgia [Unknown]
  - Urticaria [Unknown]
  - Anti-thyroid antibody [Unknown]
  - DNA antibody positive [Unknown]
